FAERS Safety Report 9536480 (Version 1)
Quarter: 2013Q3

REPORT INFORMATION
  Report Type: Spontaneous
  Country: US (occurrence: None)
  Receive Date: 20130917
  Receipt Date: 20130917
  Transmission Date: 20140515
  Serious: Yes (Disabling)
  Sender: FDA-Public Use
  Company Number: None

PATIENT
  Sex: 0

DRUGS (1)
  1. LYRICA [Suspect]
     Indication: FIBROMYALGIA
     Dosage: 3 DOSE THREE TIMES DAILY TAKEN BY MOUTH
     Route: 048

REACTIONS (2)
  - Dysuria [None]
  - Urinary incontinence [None]
